FAERS Safety Report 21489152 (Version 1)
Quarter: 2022Q4

REPORT INFORMATION
  Report Type: Spontaneous
  Country: US (occurrence: US)
  Receive Date: 20221021
  Receipt Date: 20221021
  Transmission Date: 20230113
  Serious: Yes (Hospitalization, Other)
  Sender: FDA-Public Use
  Company Number: US-KYOWAKIRIN-2022AKK016158

PATIENT
  Age: 64 Year
  Sex: Female

DRUGS (4)
  1. FILGRASTIM [Suspect]
     Active Substance: FILGRASTIM
     Indication: Neutropenia
     Dosage: UNK
     Route: 065
  2. PEGFILGRASTIM [Suspect]
     Active Substance: PEGFILGRASTIM
     Indication: Neutropenia
     Dosage: UNK
     Route: 065
  3. METHYLPREDNISOLONE [Concomitant]
     Active Substance: METHYLPREDNISOLONE
     Indication: COVID-19
     Dosage: 1 MILLIGRAM/KILOGRAM, QD
     Route: 065
  4. METHYLPREDNISOLONE [Concomitant]
     Active Substance: METHYLPREDNISOLONE
     Dosage: 2 MILLIGRAM/KILOGRAM, QD
     Route: 065

REACTIONS (1)
  - Immune reconstitution inflammatory syndrome [Unknown]
